FAERS Safety Report 10642984 (Version 2)
Quarter: 2014Q4

REPORT INFORMATION
  Report Type: Spontaneous
  Country: IT (occurrence: IT)
  Receive Date: 20141210
  Receipt Date: 20141216
  Transmission Date: 20150529
  Serious: Yes (Other)
  Sender: FDA-Public Use
  Company Number: IT-SA-2014SA167393

PATIENT
  Age: 94 Year
  Sex: Female
  Weight: 78 kg

DRUGS (4)
  1. ANTRA [Suspect]
     Active Substance: OMEPRAZOLE
     Indication: PROPHYLAXIS
     Route: 048
     Dates: start: 20140629, end: 20140701
  2. EPREX [Suspect]
     Active Substance: ERYTHROPOIETIN
     Indication: ANAEMIA
     Dosage: STRENGTH: 6000 IU / 0.6 ML
     Route: 058
     Dates: start: 20140628, end: 20140630
  3. FERLIXIT [Suspect]
     Active Substance: SODIUM FERRIC GLUCONATE COMPLEX
     Indication: ANAEMIA
     Dosage: FORM:SOLUTION FOR ORAL USE AND INTRAVENOUS USE
     Route: 065
     Dates: start: 20140628, end: 20140701
  4. EPREX [Suspect]
     Active Substance: ERYTHROPOIETIN
     Indication: ANAEMIA
     Dosage: STRENGTH: 6000 IU / 0.6 ML
     Route: 065

REACTIONS (2)
  - Pruritus [Recovered/Resolved]
  - Skin exfoliation [Recovered/Resolved]

NARRATIVE: CASE EVENT DATE: 20140701
